FAERS Safety Report 11526718 (Version 1)
Quarter: 2015Q3

REPORT INFORMATION
  Report Type: Spontaneous
  Country: US (occurrence: US)
  Receive Date: 20150903
  Receipt Date: 20150903
  Transmission Date: 20151125
  Serious: No
  Sender: FDA-Public Use
  Company Number: US-ELI_LILLY_AND_COMPANY-US201405002693

PATIENT
  Sex: Male

DRUGS (6)
  1. WELLBUTRIN [Interacting]
     Active Substance: BUPROPION HYDROCHLORIDE
  2. TRICOR [Interacting]
     Active Substance: FENOFIBRATE
  3. CYMBALTA [Suspect]
     Active Substance: DULOXETINE HYDROCHLORIDE
  4. INSULIN [Concomitant]
     Active Substance: INSULIN NOS
  5. XANAX [Interacting]
     Active Substance: ALPRAZOLAM
  6. ACTOS [Concomitant]
     Active Substance: PIOGLITAZONE HYDROCHLORIDE

REACTIONS (4)
  - Depression [Unknown]
  - Flatulence [Unknown]
  - Diarrhoea [Unknown]
  - Drug interaction [Unknown]
